FAERS Safety Report 5214085-6 (Version None)
Quarter: 2007Q1

REPORT INFORMATION
  Report Type: 
  Country: None (occurrence: None)
  Receive Date: 20070122
  Receipt Date: 20070112
  Transmission Date: 20070707
  Serious: Yes (Hospitalization)
  Sender: FDA-Public Use
  Company Number: US-JNJFOC-20070103108

PATIENT
  Age: 27 Year
  Sex: Female

DRUGS (7)
  1. FENTANYL TRANSDERMAL SYSTEM [Suspect]
     Indication: DRUG ABUSER
  2. COCAINE [Suspect]
     Indication: DRUG ABUSER
  3. BENZODIAZEPINE [Suspect]
     Indication: DRUG ABUSER
  4. AMPHETAMINE [Concomitant]
  5. ASPIRIN [Concomitant]
  6. ETHANOL [Concomitant]
  7. TRICYCLIC ANTIDEPRESSANTS [Concomitant]

REACTIONS (4)
  - CEREBRAL INFARCTION [None]
  - INTENTIONAL DRUG MISUSE [None]
  - MULTIPLE DRUG OVERDOSE [None]
  - OVERDOSE [None]
